FAERS Safety Report 25369216 (Version 1)
Quarter: 2025Q2

REPORT INFORMATION
  Report Type: Spontaneous
  Country: KR (occurrence: KR)
  Receive Date: 20250528
  Receipt Date: 20250528
  Transmission Date: 20250716
  Serious: Yes (Other)
  Sender: MERCK SHARP & DOHME LLC
  Company Number: KR-009507513-2289426

PATIENT
  Age: 66 Year
  Sex: Male

DRUGS (2)
  1. CANCIDAS [Suspect]
     Active Substance: CASPOFUNGIN ACETATE
     Indication: Pneumonia
     Dates: start: 20240826, end: 20240924
  2. MEROPENEM SODIUM CARBONATE [Suspect]
     Active Substance: MEROPENEM SODIUM CARBONATE
     Indication: Antibiotic therapy
     Dates: start: 20240826, end: 20240924

REACTIONS (2)
  - Eosinophilia [Recovered/Resolved]
  - Drug reaction with eosinophilia and systemic symptoms [Recovered/Resolved]

NARRATIVE: CASE EVENT DATE: 20240909
